FAERS Safety Report 25025649 (Version 1)
Quarter: 2025Q1

REPORT INFORMATION
  Report Type: Report from Study
  Country: CA (occurrence: CA)
  Receive Date: 20250228
  Receipt Date: 20250228
  Transmission Date: 20250409
  Serious: Yes (Hospitalization, Other)
  Sender: ABBVIE
  Company Number: CA-ABBVIE-6148243

PATIENT
  Sex: Female

DRUGS (1)
  1. RINVOQ [Suspect]
     Active Substance: UPADACITINIB
     Indication: Dermatitis atopic
     Dosage: FORM STRENGTH: 30 MILLIGRAM
     Route: 048
     Dates: end: 20240522

REACTIONS (8)
  - Intestinal mass [Unknown]
  - Malaise [Unknown]
  - Abdominal pain lower [Unknown]
  - Haemoglobin decreased [Unknown]
  - Pyrexia [Unknown]
  - Diverticulitis [Unknown]
  - Intervertebral disc protrusion [Unknown]
  - Abdominal abscess [Unknown]

NARRATIVE: CASE EVENT DATE: 20240101
